FAERS Safety Report 25485102 (Version 2)
Quarter: 2025Q3

REPORT INFORMATION
  Report Type: Spontaneous
  Country: US (occurrence: None)
  Receive Date: 20250626
  Receipt Date: 20250721
  Transmission Date: 20251020
  Serious: No
  Sender: INCYTE
  Company Number: US-INCYTE CORPORATION-2025IN006664

PATIENT
  Age: 91 Year

DRUGS (2)
  1. JAKAFI [Suspect]
     Active Substance: RUXOLITINIB
     Indication: Myeloproliferative neoplasm
     Dosage: 10 MILLIGRAM, BID (ON MON/THUR, QD ON ALL OTHER DAYS)
  2. JAKAFI [Suspect]
     Active Substance: RUXOLITINIB
     Dosage: 10 MILLIGRAM, BID (ON MON/THUR, QD ON ALL OTHER DAYS)

REACTIONS (5)
  - Sinus disorder [Unknown]
  - Nasopharyngitis [Unknown]
  - Blood iron decreased [Unknown]
  - Off label use [Unknown]
  - Product dose omission issue [Unknown]
